FAERS Safety Report 9642997 (Version 2)
Quarter: 2013Q4

REPORT INFORMATION
  Report Type: Spontaneous
  Country: AU (occurrence: AU)
  Receive Date: 20131024
  Receipt Date: 20131108
  Transmission Date: 20140711
  Serious: Yes (Death, Hospitalization, Disabling, Other)
  Sender: FDA-Public Use
  Company Number: AU-RANBAXY-2013RR-74556

PATIENT
  Age: 61 Year
  Sex: Male

DRUGS (1)
  1. ATORVASTATIN [Suspect]
     Indication: DYSLIPIDAEMIA
     Dosage: 40 MG/DAY
     Route: 048

REACTIONS (5)
  - Rhabdomyolysis [Fatal]
  - Myositis [Fatal]
  - Weight decreased [Unknown]
  - Quadriparesis [Unknown]
  - Respiratory failure [Fatal]
